FAERS Safety Report 12786856 (Version 1)
Quarter: 2016Q3

REPORT INFORMATION
  Report Type: Spontaneous
  Country: US (occurrence: US)
  Receive Date: 20160927
  Receipt Date: 20160927
  Transmission Date: 20161109
  Serious: Yes (Hospitalization)
  Sender: FDA-Public Use
  Company Number: None

PATIENT
  Age: 66 Year
  Sex: Female
  Weight: 67.05 kg

DRUGS (10)
  1. MAXALT [Concomitant]
     Active Substance: RIZATRIPTAN BENZOATE
  2. PROPRANOLOL [Concomitant]
     Active Substance: PROPRANOLOL\PROPRANOLOL HYDROCHLORIDE
  3. INDAPAMIDE. [Concomitant]
     Active Substance: INDAPAMIDE
  4. COQ10 [Concomitant]
     Active Substance: UBIDECARENONE
  5. CALCIUM [Concomitant]
     Active Substance: CALCIUM
  6. RESTASIS [Suspect]
     Active Substance: CYCLOSPORINE
     Indication: DRY EYE
     Route: 047
     Dates: start: 20160907, end: 20160926
  7. KRILL OIL [Concomitant]
     Active Substance: DIETARY SUPPLEMENT
  8. A-F BETAFOOD STANDARD PROCESS [Suspect]
     Active Substance: DIETARY SUPPLEMENT
     Indication: DRY EYE
     Route: 048
     Dates: start: 20160907, end: 20160910
  9. CRESTOR [Concomitant]
     Active Substance: ROSUVASTATIN CALCIUM
  10. VITAMIN C [Concomitant]
     Active Substance: ASCORBIC ACID

REACTIONS (11)
  - Nausea [None]
  - Headache [None]
  - Cough [None]
  - Diarrhoea [None]
  - Muscle spasms [None]
  - Hypersensitivity [None]
  - Abdominal pain upper [None]
  - Throat tightness [None]
  - Vomiting [None]
  - Eosinophilia [None]
  - Dehydration [None]

NARRATIVE: CASE EVENT DATE: 20160920
